FAERS Safety Report 9182682 (Version 1)
Quarter: 2012Q4

REPORT INFORMATION
  Report Type: 
  Country: CA (occurrence: CA)
  Receive Date: 20121030
  Receipt Date: 20121030
  Transmission Date: 20130627
  Serious: Yes (Death)
  Sender: FDA-Public Use
  Company Number: CA-ACTELION-A-US2012-73397

PATIENT
  Age: 52 Year
  Sex: Female

DRUGS (5)
  1. TRACLEER [Suspect]
     Indication: PULMONARY ARTERIAL HYPERTENSION
     Dosage: 125 mg, bid
     Route: 048
     Dates: start: 20120523, end: 20120921
  2. TRACLEER [Suspect]
     Dosage: 62.5 UNK, UNK
     Route: 048
     Dates: start: 20120421, end: 20120522
  3. NEXIUM [Concomitant]
  4. EFFEXOR [Concomitant]
  5. LEVOTHYROXINE [Concomitant]

REACTIONS (1)
  - Respiratory failure [Fatal]
